FAERS Safety Report 13506070 (Version 1)
Quarter: 2017Q2

REPORT INFORMATION
  Report Type: Spontaneous
  Country: US (occurrence: US)
  Receive Date: 20170502
  Receipt Date: 20170502
  Transmission Date: 20170830
  Serious: No
  Sender: FDA-Public Use
  Company Number: US-ROCHE-1488929

PATIENT
  Age: 5 Decade
  Sex: Male

DRUGS (2)
  1. 5-FU [Concomitant]
     Active Substance: FLUOROURACIL
  2. AVASTIN [Suspect]
     Active Substance: BEVACIZUMAB
     Indication: PRODUCT USED FOR UNKNOWN INDICATION
     Route: 065

REACTIONS (2)
  - Chest pain [Not Recovered/Not Resolved]
  - Embolism arterial [Unknown]
